FAERS Safety Report 7496038-0 (Version None)
Quarter: 2011Q2

REPORT INFORMATION
  Report Type: 
  Country: None (occurrence: None)
  Receive Date: 20110520
  Receipt Date: 20110520
  Transmission Date: 20111010
  Serious: Yes (Other)
  Sender: FDA-Public Use
  Company Number: None

PATIENT
  Age: 53 Year
  Sex: Male
  Weight: 94.3482 kg

DRUGS (1)
  1. LEVOTHYROXINE SODIUM [Suspect]
     Indication: HYPOTHYROIDISM
     Dosage: 25MCG 1X/DAY PO
     Route: 048
     Dates: start: 20110518, end: 20110519

REACTIONS (4)
  - RASH [None]
  - PAIN [None]
  - SWELLING [None]
  - PRODUCT QUALITY ISSUE [None]
